FAERS Safety Report 4331310-4 (Version None)
Quarter: 2004Q1

REPORT INFORMATION
  Report Type: 
  Country: None (occurrence: None)
  Receive Date: 20040331
  Receipt Date: 20040312
  Transmission Date: 20041129
  Serious: Yes (Hospitalization)
  Sender: FDA-Public Use
  Company Number: FR_040203609

PATIENT
  Age: 67 Year
  Sex: Male
  Weight: 91 kg

DRUGS (2)
  1. CIALIS [Suspect]
     Indication: ERECTILE DYSFUNCTION
     Dosage: 20 MG/1 DAY
     Dates: start: 20040122, end: 20040122
  2. AMLODIPINE BESYLATE [Concomitant]

REACTIONS (4)
  - AMNESIA [None]
  - DRUG INTERACTION [None]
  - HYPOPERFUSION [None]
  - HYPOTENSION [None]
